FAERS Safety Report 14026191 (Version 1)
Quarter: 2017Q3

REPORT INFORMATION
  Report Type: Spontaneous
  Country: UY (occurrence: UY)
  Receive Date: 20170929
  Receipt Date: 20170929
  Transmission Date: 20171128
  Serious: Yes (Hospitalization, Other)
  Sender: FDA-Public Use
  Company Number: UY-MYLANLABS-2017M1060735

PATIENT
  Age: 71 Year
  Sex: Male

DRUGS (3)
  1. ENALAPRIL [Concomitant]
     Active Substance: ENALAPRIL
     Indication: HYPERTENSION
     Route: 065
  2. TERAZOSIN [Suspect]
     Active Substance: TERAZOSIN\TERAZOSIN HYDROCHLORIDE
     Indication: BENIGN PROSTATIC HYPERPLASIA
     Route: 065
  3. TERAZOSIN [Suspect]
     Active Substance: TERAZOSIN\TERAZOSIN HYDROCHLORIDE
     Dosage: SELF MEDICATION; 5MG
     Route: 048

REACTIONS (3)
  - Ischaemic cardiomyopathy [Recovering/Resolving]
  - Left ventricle outflow tract obstruction [Recovering/Resolving]
  - Acute myocardial infarction [Recovering/Resolving]
